FAERS Safety Report 22595031 (Version 1)
Quarter: 2023Q2

REPORT INFORMATION
  Report Type: Spontaneous
  Country: US (occurrence: None)
  Receive Date: 20230612
  Receipt Date: 20230612
  Transmission Date: 20230721
  Serious: Yes (Life-Threatening, Hospitalization)
  Sender: FDA-Public Use
  Company Number: None

PATIENT
  Age: 67 Year
  Sex: Male
  Weight: 86.1 kg

DRUGS (8)
  1. CROTALIDAE POLYVALENT IMMUNE FAB OVINE [Suspect]
     Active Substance: CROTALIDAE POLYVALENT IMMUNE FAB OVINE
     Indication: Snake bite
     Dosage: 10 UNK ONCE INTRAVENOUS DRIP?
     Route: 041
     Dates: start: 20230530, end: 20230531
  2. ONDANSETRON [Suspect]
     Active Substance: ONDANSETRON
     Dates: start: 20230530, end: 20230530
  3. MORPHINE [Suspect]
     Active Substance: MORPHINE
     Dates: start: 20230530, end: 20230530
  4. ATORVASTATIN [Concomitant]
     Active Substance: ATORVASTATIN
     Dates: start: 20230212
  5. HYDROCHLOROTHIAZIDE\LOSARTAN [Concomitant]
     Active Substance: HYDROCHLOROTHIAZIDE\LOSARTAN
     Dates: start: 20230316
  6. MELOXICAM [Concomitant]
     Active Substance: MELOXICAM
     Dates: start: 20230313
  7. PANTOPRAZOLE [Concomitant]
     Active Substance: PANTOPRAZOLE
     Dates: start: 20230307
  8. SERTRALINE [Concomitant]
     Active Substance: SERTRALINE HYDROCHLORIDE
     Dates: start: 20230212

REACTIONS (5)
  - Hypotension [None]
  - Hyperhidrosis [None]
  - Erythema [None]
  - Urticaria [None]
  - Dyspnoea [None]

NARRATIVE: CASE EVENT DATE: 20230530
